FAERS Safety Report 7242102-0 (Version None)
Quarter: 2011Q1

REPORT INFORMATION
  Report Type: 
  Country: None (occurrence: None)
  Receive Date: 20110124
  Receipt Date: 20110124
  Transmission Date: 20110831
  Serious: Yes (Death)
  Sender: FDA-Public Use
  Company Number: JP-PFIZER INC-2008091820

PATIENT
  Age: 65 Year
  Sex: Female
  Weight: 47 kg

DRUGS (11)
  1. IRINOTECAN HCL [Suspect]
     Indication: COLORECTAL CANCER
     Dosage: 261 MG, DAILY, EVERY 2 WEEKS
     Route: 042
     Dates: start: 20081015, end: 20081015
  2. FOLINIC ACID [Suspect]
     Indication: COLORECTAL CANCER
     Dosage: 290 MG, DAILY, EVERY 2 WEEKS
     Route: 042
     Dates: start: 20081015, end: 20081015
  3. LEVOFLOXACIN [Concomitant]
     Route: 048
     Dates: start: 20081029, end: 20081029
  4. SUNITINIB MALATE [Suspect]
     Indication: COLORECTAL CANCER
     Dosage: 37.5 MG, 1X/DAY
     Route: 048
     Dates: start: 20081015, end: 20081029
  5. DEXAMETHASONE [Concomitant]
     Route: 048
     Dates: start: 20081016, end: 20081019
  6. FLUOROURACIL [Suspect]
     Indication: COLORECTAL CANCER
     Dosage: 580 MG, DAILY, EVERY 2 WEEKS
     Route: 042
     Dates: start: 20081015, end: 20081015
  7. ZOPICLONE [Concomitant]
  8. KN 1A [Concomitant]
     Route: 042
     Dates: start: 20081029, end: 20081029
  9. FLUOROURACIL [Suspect]
     Dosage: 3480 MG, EVERY 2 WEEKS
     Route: 042
     Dates: start: 20081015, end: 20081017
  10. MAGNESIUM OXIDE [Concomitant]
  11. RAMOSETRON HYDROCHLORIDE [Concomitant]
     Route: 048
     Dates: start: 20081015, end: 20081017

REACTIONS (1)
  - MYOCARDIAL INFARCTION [None]
